FAERS Safety Report 7929759-3 (Version None)
Quarter: 2011Q4

REPORT INFORMATION
  Report Type: 
  Country: None (occurrence: None)
  Receive Date: 20111121
  Receipt Date: 20110810
  Transmission Date: 20120403
  Serious: Yes (Other)
  Sender: FDA-Public Use
  Company Number: JP-PFIZER INC-2011281679

PATIENT
  Age: 69 Year
  Sex: Male

DRUGS (1)
  1. MIGLITOL [Suspect]
     Dosage: 150 MG, 1X/DAY
     Route: 048
     Dates: start: 20081014, end: 20110809

REACTIONS (1)
  - PNEUMATOSIS INTESTINALIS [None]
